FAERS Safety Report 5923185-4 (Version None)
Quarter: 2008Q4

REPORT INFORMATION
  Report Type: 
  Country: None (occurrence: None)
  Receive Date: 20081020
  Receipt Date: 20081010
  Transmission Date: 20090506
  Serious: Yes (Hospitalization)
  Sender: FDA-Public Use
  Company Number: DE-CELGENEUS-062-21880-08100788

PATIENT
  Sex: Female

DRUGS (3)
  1. REVLIMID [Suspect]
     Indication: PLASMACYTOMA
     Route: 048
     Dates: start: 20080701, end: 20080928
  2. DEXAMETHASONE [Concomitant]
     Indication: PLASMACYTOMA
     Route: 065
     Dates: start: 20080701, end: 20080928
  3. CLEXANE [Concomitant]
     Indication: PROPHYLAXIS
     Route: 065

REACTIONS (3)
  - GENERAL PHYSICAL CONDITION ABNORMAL [None]
  - PYREXIA [None]
  - WHITE BLOOD CELL COUNT DECREASED [None]
